FAERS Safety Report 9836533 (Version 1)
Quarter: 2014Q1

REPORT INFORMATION
  Report Type: Spontaneous
  Country: GB (occurrence: GB)
  Receive Date: 20140123
  Receipt Date: 20140123
  Transmission Date: 20141002
  Serious: Yes (Disabling, Other)
  Sender: FDA-Public Use
  Company Number: GB-RANBAXY-2014R1-77407

PATIENT
  Age: 87 Year
  Sex: Female
  Weight: 50 kg

DRUGS (1)
  1. CO-AMOXICLAV [Suspect]
     Indication: URINARY TRACT INFECTION
     Dosage: 375 MG, TID
     Route: 048
     Dates: start: 20140103, end: 20140103

REACTIONS (5)
  - Vomiting [Recovered/Resolved]
  - Diarrhoea [Recovered/Resolved]
  - Dermatitis exfoliative [Recovered/Resolved]
  - Rash [Recovered/Resolved]
  - Chills [Recovered/Resolved]
